FAERS Safety Report 6633060-8 (Version None)
Quarter: 2010Q1

REPORT INFORMATION
  Report Type: 
  Country: None (occurrence: None)
  Receive Date: 20100312
  Receipt Date: 20100303
  Transmission Date: 20100710
  Serious: Yes (Hospitalization)
  Sender: FDA-Public Use
  Company Number: FR-ROCHE-661314

PATIENT
  Sex: Female

DRUGS (5)
  1. TAMIFLU [Suspect]
     Route: 048
     Dates: start: 20091002, end: 20091004
  2. TAMIFLU [Suspect]
     Route: 048
     Dates: start: 20091005
  3. DANATROL [Concomitant]
     Route: 048
  4. DUPHASTON [Concomitant]
     Indication: CONTRACEPTION
     Route: 048
  5. C 1-ESTERASE-INHIBITOR [Concomitant]
     Dates: start: 20000101

REACTIONS (3)
  - ANGIOEDEMA [None]
  - HAEMOGLOBIN INCREASED [None]
  - WHITE BLOOD CELL COUNT INCREASED [None]
